FAERS Safety Report 5169876-7 (Version None)
Quarter: 2006Q4

REPORT INFORMATION
  Report Type: 
  Country: None (occurrence: None)
  Receive Date: 20061212
  Receipt Date: 20060302
  Transmission Date: 20070319
  Serious: Yes (Hospitalization)
  Sender: FDA-Public Use
  Company Number: US-ELI_LILLY_AND_COMPANY-US200603004633

PATIENT
  Age: 37 Year
  Sex: Male
  Weight: 145.12 kg

DRUGS (5)
  1. METOPROLOL SUCCINATE [Concomitant]
     Dates: start: 20020701, end: 20041101
  2. DEPAKOTE [Concomitant]
     Dates: start: 20020701, end: 20041201
  3. HYDROCHLOROTHIAZIDE [Concomitant]
     Dates: start: 20040201
  4. LEXAPRO                                 /USA/ [Concomitant]
     Dates: start: 20041201
  5. ZYPREXA [Suspect]
     Indication: ANGER
     Dosage: 20 MG, UNK
     Dates: start: 20020801, end: 20050301

REACTIONS (5)
  - CHEST PAIN [None]
  - DIABETES MELLITUS [None]
  - HYPERGLYCAEMIA [None]
  - MYOCARDIAL INFARCTION [None]
  - WEIGHT INCREASED [None]
